FAERS Safety Report 24705915 (Version 1)
Quarter: 2024Q4

REPORT INFORMATION
  Report Type: Other
  Country: US (occurrence: US)
  Receive Date: 20241206
  Receipt Date: 20241206
  Transmission Date: 20250115
  Serious: Yes (Hospitalization, Other)
  Sender: KNIGHT THERAPEUTICS
  Company Number: US-Knight Therapeutics (USA) Inc.-2166554

PATIENT
  Age: 40 Year
  Sex: Male

DRUGS (3)
  1. IMPAVIDO [Suspect]
     Active Substance: MILTEFOSINE
     Indication: Mucocutaneous leishmaniasis
  2. AMPHOTERICIN B [Suspect]
     Active Substance: AMPHOTERICIN B
  3. MEGLUMINE ANTIMONIATE [Suspect]
     Active Substance: MEGLUMINE ANTIMONIATE

REACTIONS (3)
  - Infection [Recovered/Resolved]
  - Skin lesion [Recovered/Resolved]
  - Lymphangitis [Recovered/Resolved]
